FAERS Safety Report 16702207 (Version 3)
Quarter: 2020Q3

REPORT INFORMATION
  Report Type: Report from Study
  Country: US (occurrence: US)
  Receive Date: 20190814
  Receipt Date: 20191009
  Transmission Date: 20201105
  Serious: Yes (Hospitalization)
  Sender: FDA-Public Use
  Company Number: US-BRISTOL-MYERS SQUIBB COMPANY-BMS-2019-079267

PATIENT
  Age: 52 Year
  Sex: Male
  Weight: 122.5 kg

DRUGS (2)
  1. DS?8273A. [Suspect]
     Active Substance: DS-8273A
     Indication: MALIGNANT MELANOMA
     Dosage: 2786 MILLIGRAM, Q3WK
     Route: 042
     Dates: start: 20181024, end: 20190724
  2. NIVOLUMAB [Suspect]
     Active Substance: NIVOLUMAB
     Indication: MALIGNANT MELANOMA
     Dosage: 580.5 MILLIGRAM, Q3WK
     Route: 042
     Dates: start: 20181024, end: 20190724

REACTIONS (3)
  - Fall [Unknown]
  - Musculoskeletal pain [Unknown]
  - Peripheral motor neuropathy [Recovered/Resolved with Sequelae]

NARRATIVE: CASE EVENT DATE: 20190801
